FAERS Safety Report 6896298-0 (Version None)
Quarter: 2010Q3

REPORT INFORMATION
  Report Type: 
  Country: None (occurrence: None)
  Receive Date: 20100802
  Receipt Date: 20100727
  Transmission Date: 20110219
  Serious: Yes (Hospitalization)
  Sender: FDA-Public Use
  Company Number: B0667757A

PATIENT
  Sex: Male
  Weight: 60 kg

DRUGS (16)
  1. ALKERAN [Suspect]
     Indication: STEM CELL TRANSPLANT
     Dosage: 100MG PER DAY
     Route: 042
     Dates: start: 20080602, end: 20080603
  2. COTRIM [Suspect]
     Dosage: 4IUAX PER DAY
     Route: 048
     Dates: start: 20080526, end: 20080603
  3. TAKEPRON [Suspect]
     Dosage: 30MG PER DAY
     Route: 048
     Dates: start: 20080526, end: 20080612
  4. ACYCLOVIR [Suspect]
     Dosage: 1.25G PER DAY
     Route: 048
     Dates: start: 20080530, end: 20080611
  5. DIFLUCAN [Suspect]
     Dosage: 200MG PER DAY
     Route: 048
     Dates: start: 20080602, end: 20080608
  6. CIPROFLOXACIN HCL [Suspect]
     Dosage: 600MG PER DAY
     Route: 048
     Dates: start: 20080602, end: 20080608
  7. VICCLOX [Suspect]
     Dosage: 750MG PER DAY
     Route: 042
     Dates: start: 20080611, end: 20080617
  8. NEUTROGIN [Concomitant]
     Route: 042
     Dates: start: 20080606, end: 20080616
  9. ZOMETA [Concomitant]
     Dosage: 4MG PER DAY
     Route: 042
     Dates: start: 20080620, end: 20080620
  10. ZOMETA [Concomitant]
     Dosage: 4MG PER DAY
     Route: 042
     Dates: start: 20080714, end: 20080714
  11. ZOMETA [Concomitant]
     Dosage: 4MG PER DAY
     Route: 042
     Dates: start: 20080811, end: 20080811
  12. ZOMETA [Concomitant]
     Dosage: 4MG PER DAY
     Route: 042
     Dates: start: 20080906, end: 20080906
  13. ZOMETA [Concomitant]
     Dosage: 4MG PER DAY
     Route: 042
     Dates: start: 20081006, end: 20081006
  14. FULCALIQ [Concomitant]
     Dosage: 903ML PER DAY
     Route: 042
     Dates: start: 20080606, end: 20080606
  15. FULCALIQ [Concomitant]
     Dosage: 1003ML PER DAY
     Route: 042
     Dates: start: 20080607, end: 20080607
  16. FULCALIQ [Concomitant]
     Dosage: 1103ML PER DAY
     Route: 042
     Dates: start: 20080608, end: 20080619

REACTIONS (6)
  - ALANINE AMINOTRANSFERASE INCREASED [None]
  - ASPARTATE AMINOTRANSFERASE INCREASED [None]
  - HERPES ZOSTER [None]
  - MYELOMA RECURRENCE [None]
  - RASH [None]
  - RENAL FAILURE [None]
